FAERS Safety Report 9898773 (Version 2)
Quarter: 2014Q1

REPORT INFORMATION
  Report Type: Spontaneous
  Country: US (occurrence: US)
  Receive Date: 20140214
  Receipt Date: 20140214
  Transmission Date: 20141002
  Serious: No
  Sender: FDA-Public Use
  Company Number: US-GILEAD-2011-0044679

PATIENT
  Sex: Male

DRUGS (2)
  1. LETAIRIS [Suspect]
     Indication: PULMONARY ARTERIAL HYPERTENSION
     Dosage: 10 MG, UNK
     Route: 048
     Dates: start: 20090303
  2. OXYGEN [Concomitant]

REACTIONS (5)
  - Oxygen saturation decreased [Unknown]
  - Dizziness [Unknown]
  - Nasal congestion [Unknown]
  - Dyspnoea [Unknown]
  - Local swelling [Unknown]
